FAERS Safety Report 23361276 (Version 2)
Quarter: 2024Q1

REPORT INFORMATION
  Report Type: Other
  Country: CO (occurrence: None)
  Receive Date: 20240103
  Receipt Date: 20240108
  Transmission Date: 20240409
  Serious: Yes (Hospitalization)
  Sender: FDA-Public Use
  Company Number: CO-ROCHE-3483846

PATIENT
  Age: 67 Year
  Sex: Male

DRUGS (7)
  1. MYCOPHENOLATE MOFETIL [Suspect]
     Active Substance: MYCOPHENOLATE MOFETIL
     Indication: Immunosuppressant drug therapy
     Route: 065
  2. MYCOPHENOLATE MOFETIL [Suspect]
     Active Substance: MYCOPHENOLATE MOFETIL
     Route: 065
  3. TACROLIMUS [Suspect]
     Active Substance: TACROLIMUS
     Indication: Immunosuppressant drug therapy
     Route: 065
  4. TACROLIMUS [Suspect]
     Active Substance: TACROLIMUS
     Route: 065
  5. PREDNISOLONE [Suspect]
     Active Substance: PREDNISOLONE
     Indication: Immunosuppressant drug therapy
     Route: 065
  6. PREDNISOLONE [Suspect]
     Active Substance: PREDNISOLONE
     Route: 065
  7. HUMAN IMMUNOGLOBULIN G [Concomitant]
     Active Substance: HUMAN IMMUNOGLOBULIN G
     Dosage: 0.4 G/KG

REACTIONS (6)
  - Guillain-Barre syndrome [Unknown]
  - Proteus infection [Unknown]
  - Escherichia infection [Unknown]
  - Cytomegalovirus infection [Recovered/Resolved]
  - Emphysematous cystitis [Unknown]
  - Urinary tract infection [Unknown]
